FAERS Safety Report 18478080 (Version 1)
Quarter: 2020Q4

REPORT INFORMATION
  Report Type: Report from Study
  Country: None (occurrence: US)
  Receive Date: 20201108
  Receipt Date: 20201108
  Transmission Date: 20210114
  Serious: Yes (Other)
  Sender: FDA-Public Use
  Company Number: US-ABBVIE-20K-163-3612157-00

PATIENT
  Sex: Female

DRUGS (1)
  1. HUMIRA [Suspect]
     Active Substance: ADALIMUMAB
     Indication: RHEUMATOID ARTHRITIS
     Route: 058
     Dates: start: 20200826, end: 2020

REACTIONS (8)
  - Suture rupture [Unknown]
  - Urinary bladder suspension [Unknown]
  - Chills [Not Recovered/Not Resolved]
  - Pain [Unknown]
  - Postoperative wound infection [Unknown]
  - Arthralgia [Recovering/Resolving]
  - Hyperhidrosis [Not Recovered/Not Resolved]
  - Loss of personal independence in daily activities [Unknown]

NARRATIVE: CASE EVENT DATE: 2020
